FAERS Safety Report 11503152 (Version 2)
Quarter: 2016Q3

REPORT INFORMATION
  Report Type: Spontaneous
  Country: US (occurrence: US)
  Receive Date: 20150914
  Receipt Date: 20160915
  Transmission Date: 20161109
  Serious: No
  Sender: FDA-Public Use
  Company Number: US-ASTELLAS-2015US031164

PATIENT
  Age: 87 Year
  Sex: Male

DRUGS (2)
  1. XTANDI [Suspect]
     Active Substance: ENZALUTAMIDE
     Dosage: 160 MG, (4X 40 MG) ONCE DAILY
     Route: 048
     Dates: start: 201509
  2. XTANDI [Suspect]
     Active Substance: ENZALUTAMIDE
     Indication: PROSTATE CANCER
     Dosage: 1 DF (1X40 MG), ONCE DAILY
     Route: 048
     Dates: start: 20150529, end: 201509

REACTIONS (3)
  - Underdose [Unknown]
  - Prostatic specific antigen increased [Unknown]
  - Constipation [Unknown]

NARRATIVE: CASE EVENT DATE: 20150529
